FAERS Safety Report 5256559-8 (Version None)
Quarter: 2007Q1

REPORT INFORMATION
  Report Type: 
  Country: None (occurrence: None)
  Receive Date: 20070306
  Receipt Date: 20070221
  Transmission Date: 20070707
  Serious: Yes (Life-Threatening)
  Sender: FDA-Public Use
  Company Number: GB-NOVOPROD-261045

PATIENT
  Age: 35 Year
  Sex: Female
  Weight: 85 kg

DRUGS (2)
  1. LEVEMIR [Suspect]
     Indication: DIABETES MELLITUS INSULIN-DEPENDENT
     Dosage: 40 IU, QD
     Route: 058
     Dates: start: 20050901, end: 20060719
  2. NOVORAPID [Concomitant]
     Indication: DIABETES MELLITUS INSULIN-DEPENDENT
     Dosage: 8 IU, TID
     Route: 058
     Dates: start: 20030410

REACTIONS (4)
  - ATROPHY [None]
  - BREAST CANCER [None]
  - MASS [None]
  - PAIN [None]
